FAERS Safety Report 4788315-9 (Version None)
Quarter: 2005Q4

REPORT INFORMATION
  Report Type: 
  Country: None (occurrence: None)
  Receive Date: 20051003
  Receipt Date: 20050921
  Transmission Date: 20060501
  Serious: Yes (Other)
  Sender: FDA-Public Use
  Company Number: URSO-2005-033

PATIENT
  Age: 54 Year
  Sex: Male

DRUGS (10)
  1. URSODIOL [Suspect]
     Indication: HEPATITIS C
     Dosage: 600 MG
     Route: 048
     Dates: start: 20030606, end: 20040213
  2. EUGLUCON (GLIBENCLAMIDE) [Suspect]
     Indication: DIABETES MELLITUS NON-INSULIN-DEPENDENT
     Dosage: 0.625MG/1.25MG/2.5MG
     Route: 048
     Dates: start: 20000114, end: 20000817
  3. EUGLUCON (GLIBENCLAMIDE) [Suspect]
     Indication: DIABETES MELLITUS NON-INSULIN-DEPENDENT
     Dosage: 0.625MG/1.25MG/2.5MG
     Route: 048
     Dates: start: 20000818, end: 20041021
  4. EUGLUCON (GLIBENCLAMIDE) [Suspect]
     Indication: DIABETES MELLITUS NON-INSULIN-DEPENDENT
     Dosage: 0.625MG/1.25MG/2.5MG
     Route: 048
     Dates: start: 20041022, end: 20041119
  5. ROHYPNOL (FLUNITRAZEPAM) [Suspect]
     Indication: INSOMNIA
     Dosage: 2 MG
     Route: 048
  6. BASEN (VOGLIBOSE) [Suspect]
     Indication: DIABETES MELLITUS
     Dosage: 0.6MG/0.4MG
     Route: 048
     Dates: start: 20000804, end: 20030508
  7. BASEN (VOGLIBOSE) [Suspect]
     Indication: DIABETES MELLITUS
     Dosage: 0.6MG/0.4MG
     Route: 048
     Dates: start: 20030509
  8. NORVASC [Concomitant]
  9. QUINAPRIL HCL [Concomitant]
  10. DIOVAN [Concomitant]

REACTIONS (8)
  - ALANINE AMINOTRANSFERASE INCREASED [None]
  - COUGH [None]
  - ERYTHEMA [None]
  - HEPATIC FUNCTION ABNORMAL [None]
  - HYPERSENSITIVITY [None]
  - INTERSTITIAL LUNG DISEASE [None]
  - RASH [None]
  - RASH PAPULAR [None]
